FAERS Safety Report 4767870-9 (Version None)
Quarter: 2005Q3

REPORT INFORMATION
  Report Type: 
  Country: None (occurrence: None)
  Receive Date: 20050912
  Receipt Date: 20050902
  Transmission Date: 20060218
  Serious: Yes (Hospitalization, Other)
  Sender: FDA-Public Use
  Company Number: KII-2005-0018430

PATIENT
  Age: 41 Year
  Sex: Male

DRUGS (2)
  1. MORPHINE [Suspect]
     Dosage: SEE TEXT, ORAL
     Route: 048
  2. ALCOHOL(ETHANOL) [Suspect]
     Dosage: ORAL
     Route: 048

REACTIONS (10)
  - AGITATION [None]
  - BLOOD PH DECREASED [None]
  - BLOOD PRESSURE INCREASED [None]
  - COMA [None]
  - DRUG ABUSER [None]
  - DRUG SCREEN POSITIVE [None]
  - DYSPNOEA [None]
  - MULTIPLE DRUG OVERDOSE [None]
  - OXYGEN SATURATION DECREASED [None]
  - PCO2 INCREASED [None]
